FAERS Safety Report 21420150 (Version 1)
Quarter: 2022Q4

REPORT INFORMATION
  Report Type: Report from Study
  Country: AU (occurrence: AU)
  Receive Date: 20221007
  Receipt Date: 20221007
  Transmission Date: 20230113
  Serious: Yes (Hospitalization)
  Sender: FDA-Public Use
  Company Number: AU-ABBVIE-4140714

PATIENT
  Age: 67 Year
  Sex: Male

DRUGS (1)
  1. LEUPROLIDE ACETATE [Suspect]
     Active Substance: LEUPROLIDE ACETATE
     Indication: Prostate cancer
     Route: 030
     Dates: end: 20221004

REACTIONS (3)
  - Ureteric repair [Recovering/Resolving]
  - Skin graft [Recovering/Resolving]
  - Medical device implantation [Recovering/Resolving]

NARRATIVE: CASE EVENT DATE: 20220921
